FAERS Safety Report 4791004-8 (Version None)
Quarter: 2005Q4

REPORT INFORMATION
  Report Type: 
  Country: None (occurrence: None)
  Receive Date: 20051005
  Receipt Date: 20050921
  Transmission Date: 20060501
  Serious: Yes (Hospitalization, Other)
  Sender: FDA-Public Use
  Company Number: USA0509108818

PATIENT
  Age: 52 Year
  Sex: Male

DRUGS (2)
  1. HUMULIN N [Suspect]
     Dates: start: 19880101
  2. HUMULIN R [Suspect]
     Dates: start: 19880101

REACTIONS (1)
  - STAPHYLOCOCCAL INFECTION [None]
